FAERS Safety Report 6192625-0 (Version None)
Quarter: 2009Q2

REPORT INFORMATION
  Report Type: 
  Country: None (occurrence: None)
  Receive Date: 20090518
  Receipt Date: 20090508
  Transmission Date: 20091009
  Serious: Yes (Hospitalization, Other)
  Sender: FDA-Public Use
  Company Number: US-AMGEN-QUU344817

PATIENT
  Sex: Male

DRUGS (5)
  1. ENBREL [Suspect]
     Indication: RHEUMATOID ARTHRITIS
     Route: 058
     Dates: start: 20070201
  2. ENBREL [Suspect]
     Indication: PSORIASIS
  3. PRISTIQ [Suspect]
     Dates: start: 20090301, end: 20090507
  4. METHOTREXATE [Concomitant]
     Dates: start: 20061011
  5. KLONOPIN [Concomitant]
     Dates: start: 20090301

REACTIONS (11)
  - ARTHRALGIA [None]
  - BACK PAIN [None]
  - BLOOD TESTOSTERONE INCREASED [None]
  - DIABETES MELLITUS [None]
  - DIARRHOEA [None]
  - HYPERHIDROSIS [None]
  - LOSS OF CONSCIOUSNESS [None]
  - NAUSEA [None]
  - NECK PAIN [None]
  - PYREXIA [None]
  - VOMITING [None]
